FAERS Safety Report 20157121 (Version 1)
Quarter: 2021Q4

REPORT INFORMATION
  Report Type: Report from Study
  Country: US (occurrence: US)
  Receive Date: 20211207
  Receipt Date: 20211207
  Transmission Date: 20220303
  Serious: Yes (Hospitalization)
  Sender: FDA-Public Use
  Company Number: US-VERTEX PHARMACEUTICALS-2021-017908

PATIENT
  Age: 57 Year
  Sex: Female

DRUGS (30)
  1. TRIKAFTA [Suspect]
     Active Substance: ELEXACAFTOR\IVACAFTOR\TEZACAFTOR
     Indication: Cystic fibrosis
     Dosage: 2 ORANGE TABS/AM  + 1 BLUE TAB/PM
     Route: 048
     Dates: start: 20210225
  2. ADVAIR HFA [Concomitant]
     Active Substance: FLUTICASONE PROPIONATE\SALMETEROL XINAFOATE
     Dosage: DISKU AER 250/50
  3. ACETAMINOPHEN\CODEINE PHOSPHATE [Concomitant]
     Active Substance: ACETAMINOPHEN\CODEINE PHOSPHATE
     Dosage: 30MG
  4. AZITHROMYCIN [Concomitant]
     Active Substance: AZITHROMYCIN
     Dosage: 10MG/ML
  5. BENTYL [Concomitant]
     Active Substance: DICYCLOMINE HYDROCHLORIDE
     Dosage: INJ
  6. BENZONATATE [Concomitant]
     Active Substance: BENZONATATE
     Dosage: 100MG
  7. BETHKIS [Concomitant]
     Active Substance: TOBRAMYCIN
  8. CALCIUM CITRATE + D3 [Concomitant]
     Dosage: CALCIUM CITRATE + D3 MAXI
  9. CARAFATE [Concomitant]
     Active Substance: SUCRALFATE
     Dosage: 1 GM
  10. CYCLOBENZAPRINE [Concomitant]
     Active Substance: CYCLOBENZAPRINE
     Dosage: 10 MG
  11. ELIQUIS [Concomitant]
     Active Substance: APIXABAN
     Dosage: 5MG
  12. FAMOTIDINE [Concomitant]
     Active Substance: FAMOTIDINE
  13. FLONASE ALLERGY RELIEF [Concomitant]
     Active Substance: FLUTICASONE PROPIONATE
     Dosage: 50 MCG
  14. GUAIFENESIN [Concomitant]
     Active Substance: GUAIFENESIN
     Dosage: 2600 UNIT
  15. LEVAQUIN [Concomitant]
     Active Substance: LEVOFLOXACIN
     Dosage: 10MG
  16. LORATADINE [Concomitant]
     Active Substance: LORATADINE
     Dosage: 10MG
  17. MELATONIN [Concomitant]
     Active Substance: MELATONIN
     Dosage: 3 MG
  18. MUCINEX [Concomitant]
     Active Substance: GUAIFENESIN
     Dosage: 600MG
  19. PANCREAZE [Concomitant]
     Active Substance: PANCRELIPASE AMYLASE\PANCRELIPASE LIPASE\PANCRELIPASE PROTEASE
     Dosage: 2600 UNIT
  20. PANTOPRAZOLE [Concomitant]
     Active Substance: PANTOPRAZOLE
     Dosage: 20MG
  21. PROMETHAZINE [Concomitant]
     Active Substance: PROMETHAZINE HYDROCHLORIDE
     Dosage: TAB
  22. SODIUM CHLORIDE [Concomitant]
     Active Substance: SODIUM CHLORIDE
     Dosage: SOL
  23. SEROQUEL [Concomitant]
     Active Substance: QUETIAPINE FUMARATE
     Dosage: TAB
  24. SERTRALINE [Concomitant]
     Active Substance: SERTRALINE HYDROCHLORIDE
     Dosage: TAB
  25. TOPAMAX [Concomitant]
     Active Substance: TOPIRAMATE
     Dosage: TAB
  26. TRAMADOL HCL [Concomitant]
     Active Substance: TRAMADOL HYDROCHLORIDE
     Dosage: 50MG
  27. URSODIOL [Concomitant]
     Active Substance: URSODIOL
     Dosage: 300MG
  28. VITAMIN D3 [Concomitant]
     Active Substance: CHOLECALCIFEROL
  29. XIFAXAN [Concomitant]
     Active Substance: RIFAXIMIN
     Dosage: 200MG
  30. ZOLOFT [Concomitant]
     Active Substance: SERTRALINE HYDROCHLORIDE
     Dosage: 100MG

REACTIONS (1)
  - Infective pulmonary exacerbation of cystic fibrosis [Recovered/Resolved]

NARRATIVE: CASE EVENT DATE: 20211025
